FAERS Safety Report 11159544 (Version 4)
Quarter: 2015Q3

REPORT INFORMATION
  Report Type: Spontaneous
  Country: US (occurrence: US)
  Receive Date: 20150603
  Receipt Date: 20150807
  Transmission Date: 20151125
  Serious: Yes (Death, Hospitalization, Other)
  Sender: FDA-Public Use
  Company Number: US-BAYER-2015-296587

PATIENT
  Age: 63 Year
  Sex: Male

DRUGS (3)
  1. XOFIGO [Suspect]
     Active Substance: RADIUM RA-223 DICHLORIDE
     Indication: METASTASES TO BONE MARROW
  2. XOFIGO [Suspect]
     Active Substance: RADIUM RA-223 DICHLORIDE
     Indication: PROSTATE CANCER
     Dosage: 109.4 (AS REPORTED)
     Route: 042
     Dates: start: 20150406, end: 20150511
  3. XOFIGO [Suspect]
     Active Substance: RADIUM RA-223 DICHLORIDE
     Indication: METASTASES TO BONE
     Dosage: 104
     Route: 042
     Dates: start: 20150511, end: 20150511

REACTIONS (2)
  - Prostate cancer metastatic [Fatal]
  - Rectal haemorrhage [None]

NARRATIVE: CASE EVENT DATE: 20150527
